FAERS Safety Report 5488588-3 (Version None)
Quarter: 2007Q4

REPORT INFORMATION
  Report Type: 
  Country: None (occurrence: None)
  Receive Date: 20071017
  Receipt Date: 20070612
  Transmission Date: 20080405
  Serious: No
  Sender: FDA-Public Use
  Company Number: A0655298A

PATIENT
  Age: 28 Year
  Sex: Female

DRUGS (1)
  1. CEFTIN [Suspect]
     Indication: URINARY TRACT INFECTION
     Dosage: 250MG PER DAY
     Route: 048
     Dates: start: 20070130, end: 20070213

REACTIONS (1)
  - PLATELET COUNT DECREASED [None]
